FAERS Safety Report 7358165-8 (Version None)
Quarter: 2011Q1

REPORT INFORMATION
  Report Type: 
  Country: None (occurrence: None)
  Receive Date: 20110314
  Receipt Date: 20110314
  Transmission Date: 20110831
  Serious: Yes (Hospitalization, Other)
  Sender: FDA-Public Use
  Company Number: None

PATIENT
  Sex: Female
  Weight: 57.1532 kg

DRUGS (2)
  1. OXYCONTIN [Suspect]
     Indication: ARTHROPATHY
     Dosage: 60 MG 2X DAY ORAL
     Route: 048
  2. OXYCONTIN [Suspect]
     Indication: COMPLEX REGIONAL PAIN SYNDROME
     Dosage: 60 MG 2X DAY ORAL
     Route: 048

REACTIONS (18)
  - POLLAKIURIA [None]
  - MOOD ALTERED [None]
  - DIZZINESS [None]
  - HEADACHE [None]
  - PAIN [None]
  - INCREASED UPPER AIRWAY SECRETION [None]
  - CONDITION AGGRAVATED [None]
  - THIRST [None]
  - URINARY RETENTION [None]
  - POLYDIPSIA [None]
  - PRODUCT FORMULATION ISSUE [None]
  - ABDOMINAL PAIN UPPER [None]
  - NAUSEA [None]
  - DYSPEPSIA [None]
  - PRODUCTIVE COUGH [None]
  - BLOOD PRESSURE INCREASED [None]
  - INSOMNIA [None]
  - TREMOR [None]
